FAERS Safety Report 5627505-X (Version None)
Quarter: 2008Q1

REPORT INFORMATION
  Report Type: 
  Country: None (occurrence: None)
  Receive Date: 20080215
  Receipt Date: 20071101
  Transmission Date: 20080703
  Serious: No
  Sender: FDA-Public Use
  Company Number: A0691044A

PATIENT
  Age: 84 Year
  Sex: Male

DRUGS (5)
  1. COREG CR [Suspect]
     Dosage: 20MG PER DAY
     Route: 048
     Dates: start: 20070625
  2. FUROSEMIDE [Suspect]
     Dosage: 20MG PER DAY
     Dates: start: 20070625
  3. COUMADIN [Concomitant]
  4. LANOXIN [Concomitant]
  5. VASOTEC [Concomitant]

REACTIONS (5)
  - ABNORMAL FAECES [None]
  - ANORECTAL DISCOMFORT [None]
  - FAECES HARD [None]
  - HAEMATOCHEZIA [None]
  - POLLAKIURIA [None]
